FAERS Safety Report 4525026-9 (Version None)
Quarter: 2004Q4

REPORT INFORMATION
  Report Type: 
  Country: None (occurrence: None)
  Receive Date: 20041213
  Receipt Date: 20041125
  Transmission Date: 20050328
  Serious: Yes (Hospitalization)
  Sender: FDA-Public Use
  Company Number: PHBS2004JP15849

PATIENT
  Age: 54 Year
  Sex: Male

DRUGS (6)
  1. TEGRETOL [Suspect]
     Indication: ALCOHOLIC PSYCHOSIS
     Route: 048
     Dates: end: 20040601
  2. CONTOMIN [Suspect]
     Indication: ALCOHOLIC PSYCHOSIS
     Route: 048
     Dates: end: 20040601
  3. SERENACE [Suspect]
     Indication: ALCOHOLIC PSYCHOSIS
     Route: 048
     Dates: end: 20040601
  4. AKINETON [Suspect]
     Indication: ALCOHOLIC PSYCHOSIS
     Route: 048
     Dates: end: 20040601
  5. EURODIN [Suspect]
     Indication: ALCOHOLIC PSYCHOSIS
     Route: 048
     Dates: end: 20040601
  6. INSULIN [Concomitant]
     Indication: DIABETES MELLITUS
     Route: 058

REACTIONS (12)
  - AKINESIA [None]
  - BLOOD CREATINE PHOSPHOKINASE INCREASED [None]
  - CONSTIPATION [None]
  - DEPRESSED LEVEL OF CONSCIOUSNESS [None]
  - HYPERHIDROSIS [None]
  - ILEUS [None]
  - MUSCULOSKELETAL STIFFNESS [None]
  - MUTISM [None]
  - MYOCLONUS [None]
  - NAUSEA [None]
  - NEUROLEPTIC MALIGNANT SYNDROME [None]
  - VOMITING [None]
